FAERS Safety Report 17428878 (Version 1)
Quarter: 2020Q1

REPORT INFORMATION
  Report Type: Spontaneous
  Country: AU (occurrence: AU)
  Receive Date: 20200217
  Receipt Date: 20200217
  Transmission Date: 20200409
  Serious: Yes (Hospitalization)
  Sender: FDA-Public Use
  Company Number: AU-NOVOPROD-712296

PATIENT
  Sex: Female

DRUGS (1)
  1. RYZODEG 70/30 [Suspect]
     Active Substance: INSULIN ASPART\INSULIN DEGLUDEC
     Indication: PRODUCT USED FOR UNKNOWN INDICATION
     Dosage: 13 IU, QD (AT NIGHT)
     Route: 065

REACTIONS (2)
  - Product dose omission [Unknown]
  - Skin ulcer [Unknown]

NARRATIVE: CASE EVENT DATE: 20200206
